FAERS Safety Report 15888201 (Version 1)
Quarter: 2019Q1

REPORT INFORMATION
  Report Type: Spontaneous
  Country: FR (occurrence: FR)
  Receive Date: 20190130
  Receipt Date: 20190130
  Transmission Date: 20190417
  Serious: Yes (Other)
  Sender: FDA-Public Use
  Company Number: FR-AUROBINDO-AUR-APL-2013-04943

PATIENT
  Age: 67 Year
  Sex: Female

DRUGS (5)
  1. LAXOBERAL [Interacting]
     Active Substance: SODIUM PICOSULFATE
     Indication: LAXATIVE SUPPORTIVE CARE
     Dosage: UNK UNK,UNK,
     Route: 065
  2. MACROGOL [Interacting]
     Active Substance: POLYETHYLENE GLYCOLS
     Indication: LAXATIVE SUPPORTIVE CARE
     Dosage: UNK UNK,UNK,
     Route: 065
  3. LAXOBERAL [Interacting]
     Active Substance: SODIUM PICOSULFATE
     Indication: BOWEL PREPARATION
  4. MACROGOL [Interacting]
     Active Substance: POLYETHYLENE GLYCOLS
     Indication: BOWEL PREPARATION
  5. LAMOTRIGINE. [Suspect]
     Active Substance: LAMOTRIGINE
     Indication: PARTIAL SEIZURES
     Dosage: UNK UNK,UNK,
     Route: 065

REACTIONS (6)
  - Partial seizures [Recovered/Resolved]
  - Drug ineffective [Unknown]
  - Partial seizures with secondary generalisation [Recovered/Resolved]
  - Drug interaction [Recovered/Resolved]
  - Drug level decreased [Unknown]
  - Malabsorption [Unknown]
